FAERS Safety Report 11765961 (Version 1)
Quarter: 2015Q4

REPORT INFORMATION
  Report Type: Report from Study
  Country: BR (occurrence: BR)
  Receive Date: 20151122
  Receipt Date: 20151122
  Transmission Date: 20160304
  Serious: Yes (Other)
  Sender: FDA-Public Use
  Company Number: PHHY2015BR150277

PATIENT
  Sex: Male

DRUGS (1)
  1. FORASEQ [Suspect]
     Active Substance: BUDESONIDE\FORMOTEROL FUMARATE
     Indication: FATIGUE
     Dosage: 2 DF, QD (2 INHALATIONS PER DAY, 2 MONTHS AGO)
     Route: 055

REACTIONS (2)
  - Product use issue [Unknown]
  - Cerebrovascular accident [Unknown]
